FAERS Safety Report 10019063 (Version 3)
Quarter: 2014Q1

REPORT INFORMATION
  Report Type: Report from Study
  Country: CA (occurrence: CA)
  Receive Date: 20140318
  Receipt Date: 20140321
  Transmission Date: 20141002
  Serious: Yes (Hospitalization, Other)
  Sender: FDA-Public Use
  Company Number: CA-ABBVIE-12P-028-1029256-00

PATIENT
  Sex: Male
  Weight: 83.08 kg

DRUGS (5)
  1. HUMIRA [Suspect]
     Indication: CROHN^S DISEASE
     Route: 058
     Dates: start: 20120803, end: 20121213
  2. HUMIRA [Suspect]
     Route: 058
     Dates: start: 20121214
  3. HUMIRA [Suspect]
     Route: 058
  4. IMURAN [Concomitant]
     Indication: CROHN^S DISEASE
     Route: 048
  5. UNKNOWN HYPERTENSION MEDICATION [Concomitant]
     Indication: HYPERTENSION
     Dates: start: 2012

REACTIONS (2)
  - Intestinal stenosis [Recovering/Resolving]
  - Crohn^s disease [Recovering/Resolving]
